FAERS Safety Report 10061140 (Version 1)
Quarter: 2014Q2

REPORT INFORMATION
  Report Type: Spontaneous
  Country: GB (occurrence: GB)
  Receive Date: 20140406
  Receipt Date: 20140406
  Transmission Date: 20141212
  Serious: Yes (Other)
  Sender: FDA-Public Use
  Company Number: GB-BRISTOL-MYERS SQUIBB COMPANY-20581401

PATIENT
  Age: 75 Year
  Sex: Female
  Weight: 52 kg

DRUGS (6)
  1. PRAVASTATIN SODIUM [Suspect]
     Indication: TYPE IIA HYPERLIPIDAEMIA
     Dosage: LONG TERM USE
     Dates: start: 1989
  2. ADCAL-D3 [Concomitant]
  3. OMACOR [Concomitant]
  4. ASPIRIN [Concomitant]
  5. BETAHISTINE [Concomitant]
  6. BISOPROLOL [Concomitant]

REACTIONS (5)
  - Hypoaesthesia [Not Recovered/Not Resolved]
  - Muscle spasms [Not Recovered/Not Resolved]
  - Paraesthesia [Not Recovered/Not Resolved]
  - Burning sensation [Not Recovered/Not Resolved]
  - Back pain [Not Recovered/Not Resolved]
